FAERS Safety Report 6957874-X (Version None)
Quarter: 2010Q3

REPORT INFORMATION
  Report Type: 
  Country: None (occurrence: None)
  Receive Date: 20100830
  Receipt Date: 20100830
  Transmission Date: 20110219
  Serious: Yes (Death)
  Sender: FDA-Public Use
  Company Number: None

PATIENT
  Age: 50 Year
  Sex: Male
  Weight: 111.0406 kg

DRUGS (1)
  1. LISINOPRIL AND HYDROCHLOROTHIAZIDE [Suspect]
     Indication: HYPERTENSION
     Dosage: 1 TABLET ONCE DAILY PO
     Route: 048
     Dates: start: 20100626, end: 20100811

REACTIONS (5)
  - ACUTE RESPIRATORY DISTRESS SYNDROME [None]
  - ANGIOEDEMA [None]
  - ASPIRATION [None]
  - MULTIPLE SCLEROSIS [None]
  - PULMONARY EMBOLISM [None]
